FAERS Safety Report 9393669 (Version 3)
Quarter: 2013Q3

REPORT INFORMATION
  Report Type: Spontaneous
  Country: TW (occurrence: TW)
  Receive Date: 20130710
  Receipt Date: 20130718
  Transmission Date: 20140515
  Serious: Yes (Hospitalization)
  Sender: FDA-Public Use
  Company Number: TW-GLAXOSMITHKLINE-B0906805A

PATIENT
  Age: 23 Year
  Sex: Female
  Weight: 53.9 kg

DRUGS (2)
  1. REVOLADE [Suspect]
     Indication: IMMUNE THROMBOCYTOPENIC PURPURA
     Dosage: 25MG PER DAY
     Route: 065
     Dates: start: 20130524, end: 20130619
  2. REVOLADE [Suspect]
     Indication: IMMUNE THROMBOCYTOPENIC PURPURA
     Dosage: 50MG PER DAY
     Route: 065
     Dates: start: 20130620

REACTIONS (3)
  - Urinary tract infection [Recovered/Resolved]
  - Haematuria [Unknown]
  - Thrombocytopenia [Unknown]
